FAERS Safety Report 17006151 (Version 1)
Quarter: 2019Q4

REPORT INFORMATION
  Report Type: Spontaneous
  Country: GB (occurrence: GB)
  Receive Date: 20191107
  Receipt Date: 20191107
  Transmission Date: 20200122
  Serious: Yes (Disabling)
  Sender: FDA-Public Use
  Company Number: GB-SEPTODONT-201905572

PATIENT
  Age: 32 Year
  Sex: Female

DRUGS (1)
  1. LIGNOSPAN [Suspect]
     Active Substance: LIDOCAINE HYDROCHLORIDE
     Dosage: ONCE.
     Route: 030
     Dates: start: 20191002

REACTIONS (3)
  - Incorrect route of product administration [Recovered/Resolved]
  - Soft tissue swelling [Unknown]
  - Swelling face [Unknown]

NARRATIVE: CASE EVENT DATE: 20191002
